FAERS Safety Report 15984696 (Version 3)
Quarter: 2019Q1

REPORT INFORMATION
  Report Type: Report from Study
  Country: US (occurrence: US)
  Receive Date: 20190220
  Receipt Date: 20190301
  Transmission Date: 20190418
  Serious: Yes (Other)
  Sender: FDA-Public Use
  Company Number: US-GILEAD-2019-0391249

PATIENT
  Age: 92 Year
  Sex: Female

DRUGS (2)
  1. IDELALISIB [Suspect]
     Active Substance: IDELALISIB
     Indication: LYMPHOCYTIC LEUKAEMIA
     Dosage: 100 MG, BID
     Route: 048
     Dates: start: 20190130, end: 20190206
  2. IMBRUVICA [Concomitant]
     Active Substance: IBRUTINIB
     Dosage: UNKNOWN

REACTIONS (6)
  - Insomnia [Recovering/Resolving]
  - Malaise [Unknown]
  - Fatigue [Unknown]
  - Diarrhoea [Unknown]
  - Urinary retention [Recovering/Resolving]
  - Unevaluable event [Unknown]

NARRATIVE: CASE EVENT DATE: 20190130
